FAERS Safety Report 4454597-6 (Version None)
Quarter: 2004Q3

REPORT INFORMATION
  Report Type: 
  Country: None (occurrence: None)
  Receive Date: 20040921
  Receipt Date: 20040913
  Transmission Date: 20050211
  Serious: Yes (Other)
  Sender: FDA-Public Use
  Company Number: 200419018GDDC

PATIENT
  Age: 26 Year
  Sex: Female

DRUGS (1)
  1. METRONIDAZOLE [Suspect]
     Indication: PELVIC INFECTION
     Dosage: DOSE: STANDARD DOSE
     Route: 048
     Dates: start: 20040317, end: 20040324

REACTIONS (3)
  - ANGIONEUROTIC OEDEMA [None]
  - HYPERSENSITIVITY [None]
  - URTICARIA [None]
